FAERS Safety Report 21793351 (Version 5)
Quarter: 2024Q1

REPORT INFORMATION
  Report Type: Report from Study
  Country: CR (occurrence: CR)
  Receive Date: 20221229
  Receipt Date: 20240216
  Transmission Date: 20240410
  Serious: Yes (Life-Threatening, Other)
  Sender: FDA-Public Use
  Company Number: CR-002147023-NVSC2022CR281353

PATIENT
  Age: 71 Year
  Sex: Male
  Weight: 65.76 kg

DRUGS (15)
  1. HYDROCHLOROTHIAZIDE\VALSARTAN [Suspect]
     Active Substance: HYDROCHLOROTHIAZIDE\VALSARTAN
     Indication: Hypertension
     Dosage: 320/12.5 MG, QD
     Route: 048
     Dates: start: 2013, end: 202103
  2. HYDROCHLOROTHIAZIDE\VALSARTAN [Suspect]
     Active Substance: HYDROCHLOROTHIAZIDE\VALSARTAN
     Dosage: 320/12.5 MG, QD (STOP DATE: LIKE 4 YEARS AGO)
     Route: 048
     Dates: start: 2020
  3. HYDROCHLOROTHIAZIDE\VALSARTAN [Suspect]
     Active Substance: HYDROCHLOROTHIAZIDE\VALSARTAN
     Dosage: 320/12.5, QD (AT NIGHT (STOP DATE BEGINNING OF 2021)
     Route: 048
     Dates: end: 2021
  4. EXFORGE [Suspect]
     Active Substance: AMLODIPINE BESYLATE\VALSARTAN
     Indication: Hypertension
     Dosage: 10/320 MG, QD
     Route: 048
     Dates: start: 2020
  5. EXFORGE [Suspect]
     Active Substance: AMLODIPINE BESYLATE\VALSARTAN
     Dosage: 10/320 MG, QD
     Route: 048
     Dates: start: 202103, end: 20221123
  6. EXFORGE [Suspect]
     Active Substance: AMLODIPINE BESYLATE\VALSARTAN
     Dosage: 10/320 (START DATE BEGINNING OF 2021)
     Route: 065
  7. EXFORGE [Suspect]
     Active Substance: AMLODIPINE BESYLATE\VALSARTAN
     Dosage: 5/320 MG, QD
     Route: 048
     Dates: start: 20221121
  8. EXFORGE [Suspect]
     Active Substance: AMLODIPINE BESYLATE\VALSARTAN
     Dosage: 5/320 MG, QD
     Route: 048
     Dates: start: 20221123
  9. EXFORGE [Suspect]
     Active Substance: AMLODIPINE BESYLATE\VALSARTAN
     Dosage: 5/320 MG
     Route: 048
     Dates: start: 20221127
  10. EXFORGE [Suspect]
     Active Substance: AMLODIPINE BESYLATE\VALSARTAN
     Dosage: 5/320
     Route: 065
  11. EXFORGE [Suspect]
     Active Substance: AMLODIPINE BESYLATE\VALSARTAN
     Dosage: 5/320 MG, QD
     Route: 048
     Dates: start: 202211, end: 202305
  12. EXFORGE [Suspect]
     Active Substance: AMLODIPINE BESYLATE\VALSARTAN
     Dosage: 5/320 MG, QD
     Route: 048
     Dates: start: 202301, end: 202304
  13. EXFORGE [Suspect]
     Active Substance: AMLODIPINE BESYLATE\VALSARTAN
     Dosage: 160/5 MG
     Route: 048
     Dates: start: 2023, end: 2023
  14. EXFORGE [Suspect]
     Active Substance: AMLODIPINE BESYLATE\VALSARTAN
     Dosage: 160/5 MG (HALF IN THE MORNING AND HALF IN THE AFTERNOON)
     Route: 048
     Dates: start: 202306
  15. ALFUZOSIN [Concomitant]
     Active Substance: ALFUZOSIN
     Indication: Prostatic disorder
     Dosage: 10 MG
     Route: 065
     Dates: start: 20210921

REACTIONS (9)
  - Blood pressure decreased [Recovering/Resolving]
  - Prostate cancer [Unknown]
  - Bradycardia [Unknown]
  - Arrhythmia [Recovering/Resolving]
  - Blood pressure systolic increased [Unknown]
  - Blood pressure increased [Recovering/Resolving]
  - Tachycardia [Recovering/Resolving]
  - Wrong technique in product usage process [Unknown]
  - Discomfort [Unknown]

NARRATIVE: CASE EVENT DATE: 20210701
